FAERS Safety Report 9663830 (Version 2)
Quarter: 2014Q1

REPORT INFORMATION
  Report Type: Spontaneous
  Country: DE (occurrence: DE)
  Receive Date: 20131101
  Receipt Date: 20140218
  Transmission Date: 20141002
  Serious: Yes (Other)
  Sender: FDA-Public Use
  Company Number: DE-BAYER-2013-133152

PATIENT
  Sex: Female

DRUGS (1)
  1. AVALOX [Suspect]
     Dosage: UNK

REACTIONS (2)
  - Haemorrhage subcutaneous [Not Recovered/Not Resolved]
  - Dermatosis [Not Recovered/Not Resolved]
